FAERS Safety Report 8764255 (Version 1)
Quarter: 2012Q4

REPORT INFORMATION
  Report Type: 
  Country: DK (occurrence: VE)
  Receive Date: 20120831
  Receipt Date: 20120831
  Transmission Date: 20130627
  Serious: Yes (Other)
  Sender: FDA-Public Use
  Company Number: VE-FRI-1000038254

PATIENT
  Age: 25 Year
  Sex: Female

DRUGS (1)
  1. LEXAPRO [Suspect]
     Indication: DEPRESSION
     Dosage: 2 mg
     Route: 048
     Dates: start: 20120801, end: 20120815

REACTIONS (1)
  - Scleroderma [Recovering/Resolving]
